FAERS Safety Report 16199729 (Version 5)
Quarter: 2020Q4

REPORT INFORMATION
  Report Type: Report from Study
  Country: US (occurrence: US)
  Receive Date: 20190415
  Receipt Date: 20201101
  Transmission Date: 20210113
  Serious: Yes (Death, Life-Threatening, Hospitalization, Other)
  Sender: FDA-Public Use
  Company Number: PHEH2019US015786

PATIENT
  Age: 4 Year
  Sex: Male

DRUGS (3)
  1. CYCLOPHOSPHAMIDE. [Concomitant]
     Active Substance: CYCLOPHOSPHAMIDE
     Indication: CHEMOTHERAPY
     Dosage: UNK
     Route: 065
  2. KYMRIAH [Suspect]
     Active Substance: TISAGENLECLEUCEL
     Indication: B-CELL TYPE ACUTE LEUKAEMIA
     Dosage: UNK UNK, ONCE/SINGLE
     Route: 041
     Dates: start: 20190227
  3. FLUDARABINE [Concomitant]
     Active Substance: FLUDARABINE PHOSPHATE
     Indication: CHEMOTHERAPY
     Dosage: UNK
     Route: 065

REACTIONS (23)
  - Enterococcal infection [Not Recovered/Not Resolved]
  - Status epilepticus [Unknown]
  - Hypotension [Unknown]
  - Hemiparesis [Unknown]
  - Acute respiratory failure [Fatal]
  - Nephropathy toxic [Unknown]
  - Neurotoxicity [Not Recovered/Not Resolved]
  - Hydrocephalus [Unknown]
  - Leukaemia recurrent [Unknown]
  - Brain oedema [Unknown]
  - Cytokine release syndrome [Recovered/Resolved]
  - Thrombocytopenia [Unknown]
  - Paraparesis [Unknown]
  - Depressed level of consciousness [Unknown]
  - B-cell type acute leukaemia [Unknown]
  - Neutropenia [Unknown]
  - Cytopenia [Unknown]
  - Cerebral atrophy [Unknown]
  - Hypoxia [Unknown]
  - Human herpesvirus 6 infection [Unknown]
  - Motor dysfunction [Unknown]
  - Pyrexia [Not Recovered/Not Resolved]
  - Tremor [Unknown]

NARRATIVE: CASE EVENT DATE: 20190409
